FAERS Safety Report 4307508-8 (Version None)
Quarter: 2004Q1

REPORT INFORMATION
  Report Type: 
  Country: None (occurrence: None)
  Receive Date: 20040226
  Receipt Date: 20040211
  Transmission Date: 20041129
  Serious: Yes (Other)
  Sender: FDA-Public Use
  Company Number: GB-SHR-04-021504

PATIENT
  Age: 75 Year
  Sex: Male
  Weight: 68.9 kg

DRUGS (6)
  1. SOTALOL HCL [Suspect]
     Indication: ATRIAL FIBRILLATION
     Dosage: SEE IMAGE
     Route: 048
     Dates: start: 20010101
  2. SALACTOL (LACTIC ACID) [Concomitant]
  3. METRONIDAZOLE [Concomitant]
  4. DIGOXIN [Concomitant]
  5. SIMVASTATIN [Concomitant]
  6. RAMIPRIL [Concomitant]

REACTIONS (7)
  - DEPRESSION [None]
  - FATIGUE [None]
  - HALLUCINATIONS, MIXED [None]
  - HUNGER [None]
  - MUSCULAR WEAKNESS [None]
  - PARAESTHESIA [None]
  - PERIPHERAL COLDNESS [None]
